FAERS Safety Report 5476616-0 (Version None)
Quarter: 2007Q4

REPORT INFORMATION
  Report Type: 
  Country: None (occurrence: None)
  Receive Date: 20071004
  Receipt Date: 20070925
  Transmission Date: 20080405
  Serious: Yes (Hospitalization)
  Sender: FDA-Public Use
  Company Number: PHHO2007MX15935

PATIENT
  Age: 72 Year
  Sex: Male

DRUGS (8)
  1. ZELNORM [Suspect]
     Indication: IRRITABLE BOWEL SYNDROME
     Dosage: 6 MG, BID
     Route: 048
     Dates: start: 20060501
  2. AROPAX [Concomitant]
     Indication: DEPRESSION
  3. ALTRULINE [Concomitant]
     Indication: DEPRESSION
  4. ANAPSIQUE [Concomitant]
     Indication: DEPRESSION
  5. TAFIL [Concomitant]
     Indication: ANXIETY
  6. ARCOXIA [Concomitant]
     Indication: PAIN
  7. RIVOTRIL [Concomitant]
  8. EDRONAX [Concomitant]

REACTIONS (2)
  - CATARACT [None]
  - CATARACT OPERATION [None]
